FAERS Safety Report 7062702-0 (Version None)
Quarter: 2010Q4

REPORT INFORMATION
  Report Type: 
  Country: None (occurrence: None)
  Receive Date: 20101026
  Receipt Date: 20091211
  Transmission Date: 20110411
  Serious: No
  Sender: FDA-Public Use
  Company Number: US-PFIZER INC-2009309599

PATIENT
  Sex: Female

DRUGS (2)
  1. LIPITOR [Suspect]
     Dosage: UNK
  2. PLAVIX [Suspect]
     Dosage: UNK

REACTIONS (2)
  - DRUG INTOLERANCE [None]
  - HEADACHE [None]
